FAERS Safety Report 7701939 (Version 2)
Quarter: 2013Q4

REPORT INFORMATION
  Report Type: Report from Study
  Country: FR (occurrence: FR)
  Receive Date: 20101209
  Receipt Date: 20131011
  Transmission Date: 20140711
  Serious: Yes (Life-Threatening, Hospitalization)
  Sender: FDA-Public Use
  Company Number: FR-PFIZER INC-2010163579

PATIENT
  Age: 62 Year
  Sex: Male
  Weight: 65 kg

DRUGS (4)
  1. IRINOTECAN HCL [Suspect]
     Indication: GLIOBLASTOMA
     Dosage: 220 MG
     Route: 042
     Dates: start: 20100930, end: 20101124
  2. BEVACIZUMAB [Suspect]
     Indication: GLIOBLASTOMA
     Dosage: 650 MG
     Route: 042
     Dates: start: 20100930, end: 20101124
  3. TAHOR [Concomitant]
     Indication: CARDIAC DISORDER
     Dosage: UNK
     Route: 048
     Dates: start: 20100930
  4. CELECTOL [Concomitant]
     Indication: HYPERTENSION
     Dosage: UNK
     Route: 048
     Dates: start: 20100930

REACTIONS (2)
  - Dyspnoea exertional [Recovered/Resolved]
  - Arterial thrombosis [Recovered/Resolved]
